FAERS Safety Report 8961574 (Version 3)
Quarter: 2013Q1

REPORT INFORMATION
  Report Type: Spontaneous
  Country: CO (occurrence: CO)
  Receive Date: 20121213
  Receipt Date: 20130226
  Transmission Date: 20140127
  Serious: Yes (Death, Hospitalization)
  Sender: FDA-Public Use
  Company Number: PHHY2012CO113995

PATIENT
  Age: 69 Year
  Sex: Male

DRUGS (2)
  1. SANDOSTATIN LAR [Suspect]
     Indication: NEUROENDOCRINE TUMOUR
     Dosage: 30 MG, EVERY MONTH
     Route: 030
     Dates: start: 20121208
  2. METFORMIN [Concomitant]
     Dosage: UNK UKN, UNK

REACTIONS (1)
  - Pancreatic neuroendocrine tumour [Fatal]
